FAERS Safety Report 21387273 (Version 1)
Quarter: 2022Q3

REPORT INFORMATION
  Report Type: Spontaneous
  Country: US (occurrence: None)
  Receive Date: 20220928
  Receipt Date: 20220928
  Transmission Date: 20221027
  Serious: No
  Sender: FDA-Public Use
  Company Number: 2022A323748

PATIENT
  Sex: Male
  Weight: 96.2 kg

DRUGS (11)
  1. BUDESONIDE\FORMOTEROL\GLYCOPYRRONIUM [Suspect]
     Active Substance: BUDESONIDE\FORMOTEROL\GLYCOPYRRONIUM
     Indication: Dyspnoea
     Dosage: UNKNOWN
     Route: 055
  2. PROTONIX [Concomitant]
     Active Substance: PANTOPRAZOLE SODIUM
  3. FAMOTIDINE [Concomitant]
     Active Substance: FAMOTIDINE
  4. LIPITOR [Concomitant]
     Active Substance: ATORVASTATIN CALCIUM
  5. UNSPECIFIED INGREDIENT [Concomitant]
     Active Substance: UNSPECIFIED INGREDIENT
  6. METFORMIN [Concomitant]
     Active Substance: METFORMIN HYDROCHLORIDE
  7. INVOKANA [Concomitant]
     Active Substance: CANAGLIFLOZIN
  8. METOPROLOL [Concomitant]
     Active Substance: METOPROLOL
  9. LISINOPRIL [Concomitant]
     Active Substance: LISINOPRIL
  10. POTASSIUM [Concomitant]
     Active Substance: POTASSIUM
  11. LANTUS [Concomitant]
     Active Substance: INSULIN GLARGINE

REACTIONS (4)
  - Blood glucose increased [Unknown]
  - Off label use [Unknown]
  - Intentional device misuse [Unknown]
  - Product dose omission issue [Unknown]
